FAERS Safety Report 7729769-5 (Version None)
Quarter: 2011Q3

REPORT INFORMATION
  Report Type: 
  Country: None (occurrence: None)
  Receive Date: 20110906
  Receipt Date: 20110830
  Transmission Date: 20111222
  Serious: Yes (Death, Hospitalization)
  Sender: FDA-Public Use
  Company Number: JP-ROCHE-637546

PATIENT
  Sex: Female

DRUGS (5)
  1. EFUDEX [Concomitant]
     Route: 041
  2. EFUDEX [Concomitant]
     Dosage: NOTE: DOSAGE IS UNCERTAIN,ROUTE: INTRAVENOUS BOLUS.
     Route: 041
  3. LEUCOVORIN CALCIUM [Concomitant]
     Dosage: NOTE: DOSAGE IS UNCERTAIN.
     Route: 041
  4. IRINOTECAN HCL [Concomitant]
     Dosage: NOTE: DOSAGE IS UNCERTAIN.
     Route: 041
  5. AVASTIN [Suspect]
     Indication: RECTAL CANCER METASTATIC
     Route: 041
     Dates: start: 20080307, end: 20090417

REACTIONS (4)
  - NEUROPATHY PERIPHERAL [None]
  - DISEASE PROGRESSION [None]
  - LARGE INTESTINE PERFORATION [None]
  - PROCEDURAL SITE REACTION [None]
